FAERS Safety Report 7371191-8 (Version None)
Quarter: 2011Q1

REPORT INFORMATION
  Report Type: 
  Country: None (occurrence: None)
  Receive Date: 20110314
  Receipt Date: 20110301
  Transmission Date: 20110831
  Serious: Yes (Death)
  Sender: FDA-Public Use
  Company Number: 2011SP000735

PATIENT
  Age: 76 Year
  Sex: Male

DRUGS (3)
  1. PREDONINE /00016201/ [Concomitant]
  2. THEOLONG [Concomitant]
  3. ALVESCO [Suspect]
     Indication: ASTHMA
     Dosage: 400 MG;QD;INHALATION
     Route: 055
     Dates: start: 20090317, end: 20090322

REACTIONS (1)
  - DEATH [None]
